FAERS Safety Report 19919515 (Version 1)
Quarter: 2021Q4

REPORT INFORMATION
  Report Type: Spontaneous
  Country: JP (occurrence: JP)
  Receive Date: 20211005
  Receipt Date: 20211005
  Transmission Date: 20220303
  Serious: No
  Sender: FDA-Public Use
  Company Number: None

PATIENT
  Age: 52 Year
  Sex: Male

DRUGS (8)
  1. PAROXETINE [Suspect]
     Active Substance: PAROXETINE
     Indication: Somatic delusion
     Dosage: 40 MILLIGRAM, QD
     Route: 065
     Dates: start: 201809
  2. PAROXETINE [Suspect]
     Active Substance: PAROXETINE
     Dosage: 20 MILLIGRAM, QD
     Route: 065
  3. OLANZAPINE [Suspect]
     Active Substance: OLANZAPINE
     Indication: Schizoaffective disorder
     Dosage: 20 MILLIGRAM, QD
     Route: 065
     Dates: start: 201906, end: 2019
  4. OLANZAPINE [Suspect]
     Active Substance: OLANZAPINE
     Indication: Somatic delusion
  5. ARIPIPRAZOLE [Suspect]
     Active Substance: ARIPIPRAZOLE
     Indication: Somatic delusion
     Dosage: 9 MILLIGRAM, QD
     Route: 065
     Dates: start: 2018
  6. MIRTAZAPINE [Suspect]
     Active Substance: MIRTAZAPINE
     Indication: Major depression
     Dosage: 15-45 MILLIGRAM, QD
     Route: 065
     Dates: start: 201804, end: 201809
  7. BREXPIPRAZOLE [Suspect]
     Active Substance: BREXPIPRAZOLE
     Indication: Schizoaffective disorder
     Dosage: 2 MILLIGRAM, QD
     Route: 065
     Dates: start: 201906, end: 2019
  8. BREXPIPRAZOLE [Suspect]
     Active Substance: BREXPIPRAZOLE
     Indication: Somatic delusion

REACTIONS (4)
  - Weight increased [Unknown]
  - Drug ineffective [Unknown]
  - Bradykinesia [Unknown]
  - Therapeutic product effect incomplete [Unknown]

NARRATIVE: CASE EVENT DATE: 20180101
